FAERS Safety Report 6520060-1 (Version None)
Quarter: 2009Q4

REPORT INFORMATION
  Report Type: 
  Country: None (occurrence: None)
  Receive Date: 20091229
  Receipt Date: 20091215
  Transmission Date: 20100525
  Serious: Yes (Other)
  Sender: FDA-Public Use
  Company Number: PHHY2009MX56176

PATIENT
  Age: 74 Year
  Sex: Male

DRUGS (1)
  1. DIOVAN HCT [Suspect]
     Indication: HYPERTENSION
     Dosage: 160/25MG 1 TABLET DAILY
     Route: 048
     Dates: start: 20091101, end: 20091101

REACTIONS (3)
  - ABDOMINAL PAIN UPPER [None]
  - ANGINA PECTORIS [None]
  - RASH [None]
